FAERS Safety Report 4713985-0 (Version None)
Quarter: 2005Q3

REPORT INFORMATION
  Report Type: 
  Country: None (occurrence: None)
  Receive Date: 20050712
  Receipt Date: 20050628
  Transmission Date: 20060218
  Serious: Yes (Life-Threatening, Hospitalization)
  Sender: FDA-Public Use
  Company Number: EWC050744737

PATIENT
  Age: 62 Year
  Sex: Male
  Weight: 51 kg

DRUGS (3)
  1. GEMCITABINE HYDROCHLORIDE-IV (GEMCITABINE) [Suspect]
     Indication: NON-SMALL CELL LUNG CANCER STAGE IV
     Dosage: 1G/2 OTHER
     Route: 050
     Dates: start: 20050606, end: 20050613
  2. CARBOPLATIN [Concomitant]
  3. GRANISETRON [Concomitant]

REACTIONS (9)
  - ASTHENIA [None]
  - BLOOD PRESSURE DECREASED [None]
  - BLOOD TEST ABNORMAL [None]
  - DYSPNOEA [None]
  - PALLOR [None]
  - PULMONARY EMBOLISM [None]
  - PYREXIA [None]
  - TACHYCARDIA [None]
  - TACHYPNOEA [None]
